FAERS Safety Report 15547735 (Version 1)
Quarter: 2018Q4

REPORT INFORMATION
  Report Type: Report from Study
  Country: US (occurrence: US)
  Receive Date: 20181024
  Receipt Date: 20181024
  Transmission Date: 20190205
  Serious: Yes (Other)
  Sender: FDA-Public Use
  Company Number: US-SHIRE-US201840215

PATIENT
  Age: 71 Year
  Sex: Female

DRUGS (1)
  1. GATTEX [Suspect]
     Active Substance: TEDUGLUTIDE\WATER
     Indication: SHORT-BOWEL SYNDROME
     Dosage: 3.6 MG, 1X/DAY:QD
     Route: 058
     Dates: start: 20180926

REACTIONS (3)
  - Vomiting [Unknown]
  - Nausea [Unknown]
  - Stoma obstruction [Recovering/Resolving]

NARRATIVE: CASE EVENT DATE: 20181012
